FAERS Safety Report 4895357-1 (Version None)
Quarter: 2006Q1

REPORT INFORMATION
  Report Type: 
  Country: None (occurrence: None)
  Receive Date: 20060130
  Receipt Date: 20050509
  Transmission Date: 20060701
  Serious: Yes (Other)
  Sender: FDA-Public Use
  Company Number: DE-MERCK-0505DEU00048

PATIENT
  Age: 28 Year
  Sex: Female

DRUGS (3)
  1. SINGULAIR [Suspect]
     Indication: ALLERGIC SINUSITIS
     Route: 048
     Dates: start: 20050404, end: 20050409
  2. SINGULAIR [Suspect]
     Indication: RHINITIS ALLERGIC
     Route: 048
     Dates: start: 20050404, end: 20050409
  3. CHLORMADINONE ACETATE AND MESTRANOL [Concomitant]
     Route: 048
     Dates: start: 20050331, end: 20050401

REACTIONS (6)
  - ANAEMIA [None]
  - DRUG EXPOSURE DURING PREGNANCY [None]
  - LYMPHADENOPATHY [None]
  - OVERDOSE [None]
  - PYREXIA [None]
  - VAGINAL DISORDER [None]
